FAERS Safety Report 23601400 (Version 5)
Quarter: 2024Q3

REPORT INFORMATION
  Report Type: Spontaneous
  Country: AT (occurrence: AT)
  Receive Date: 20240306
  Receipt Date: 20240809
  Transmission Date: 20241017
  Serious: Yes (Death, Hospitalization)
  Sender: CSL BEHRING
  Company Number: AT-BEH-2024169148

PATIENT
  Age: 79 Year
  Sex: Male
  Weight: 77.007 kg

DRUGS (4)
  1. PRIVIGEN [Suspect]
     Active Substance: HUMAN IMMUNOGLOBULIN G
     Dosage: 10 G, SINGLE
     Route: 042
     Dates: start: 20240213, end: 20240213
  2. ELRANATAMAB [Concomitant]
     Active Substance: ELRANATAMAB
     Indication: Plasma cell myeloma refractory
     Dosage: 76 MILLIGRAM, QOW
     Route: 058
     Dates: start: 20230116, end: 20240116
  3. ELRANATAMAB [Concomitant]
     Active Substance: ELRANATAMAB
     Dosage: 76 MILLIGRAM, QMT
     Route: 058
     Dates: start: 20231219
  4. ELRANATAMAB [Concomitant]
     Active Substance: ELRANATAMAB
     Dosage: 76 MILLIGRAM, QMT
     Route: 058
     Dates: start: 20230116, end: 20240116

REACTIONS (6)
  - Cardiac failure [Fatal]
  - Drug hypersensitivity [Recovered/Resolved]
  - Urinary retention [Recovered/Resolved]
  - Chills [Recovered/Resolved]
  - Body temperature increased [Recovered/Resolved]
  - C-reactive protein increased [Unknown]

NARRATIVE: CASE EVENT DATE: 20240213
